FAERS Safety Report 5704632-X (Version None)
Quarter: 2008Q2

REPORT INFORMATION
  Report Type: 
  Country: None (occurrence: None)
  Receive Date: 20080414
  Receipt Date: 20080401
  Transmission Date: 20081010
  Serious: Yes (Hospitalization)
  Sender: FDA-Public Use
  Company Number: FR-ROCHE-556684

PATIENT
  Sex: Female

DRUGS (10)
  1. VALIUM [Suspect]
     Indication: DRUG USE FOR UNKNOWN INDICATION
     Route: 048
     Dates: start: 20071226, end: 20080204
  2. NOZINAN [Suspect]
     Indication: DRUG USE FOR UNKNOWN INDICATION
     Route: 048
     Dates: start: 20080130, end: 20080205
  3. LEPTICUR [Suspect]
     Indication: DRUG USE FOR UNKNOWN INDICATION
     Route: 048
     Dates: start: 20080129, end: 20080202
  4. HALDOL [Suspect]
     Indication: DRUG USE FOR UNKNOWN INDICATION
     Route: 048
     Dates: start: 20080126, end: 20080205
  5. TERCIAN [Suspect]
     Indication: DRUG USE FOR UNKNOWN INDICATION
     Route: 048
     Dates: start: 20080111, end: 20080125
  6. NOCTAMIDE [Concomitant]
     Dates: start: 20071231, end: 20080109
  7. LOXAPAC [Concomitant]
     Dates: start: 20080110, end: 20080126
  8. RIVOTRIL [Concomitant]
     Dates: start: 20080103, end: 20080109
  9. TERALITHE [Concomitant]
     Dates: start: 20080124, end: 20080126
  10. CLOZAPINE [Concomitant]
     Indication: PSYCHIATRIC DECOMPENSATION
     Dates: end: 20080101

REACTIONS (1)
  - HEPATITIS CHOLESTATIC [None]
